FAERS Safety Report 15807285 (Version 1)
Quarter: 2019Q1

REPORT INFORMATION
  Report Type: Spontaneous
  Country: US (occurrence: US)
  Receive Date: 20190110
  Receipt Date: 20190110
  Transmission Date: 20190417
  Serious: No
  Sender: FDA-Public Use
  Company Number: US-VERTEX PHARMACEUTICALS-2019-000177

PATIENT
  Sex: Male

DRUGS (3)
  1. CAYSTON [Concomitant]
     Active Substance: AZTREONAM
     Dosage: 75 MG, TID
  2. SYMDEKO [Suspect]
     Active Substance: IVACAFTOR\TEZACAFTOR
     Indication: CYSTIC FIBROSIS
     Dosage: UNK, BID
     Route: 048
  3. PULMOZYME [Concomitant]
     Active Substance: DORNASE ALFA
     Dosage: UNK

REACTIONS (2)
  - Infective pulmonary exacerbation of cystic fibrosis [Unknown]
  - Infection [Unknown]
